FAERS Safety Report 6259915-4 (Version None)
Quarter: 2009Q3

REPORT INFORMATION
  Report Type: 
  Country: None (occurrence: None)
  Receive Date: 20090708
  Receipt Date: 20090624
  Transmission Date: 20100115
  Serious: Yes (Hospitalization)
  Sender: FDA-Public Use
  Company Number: PHHY2009FR26216

PATIENT
  Sex: Female

DRUGS (14)
  1. COTAREG [Interacting]
     Indication: HYPERTENSION
     Dosage: 1 DF, QD
     Route: 048
     Dates: end: 20090202
  2. LASIX [Interacting]
     Indication: HYPERTENSION
     Dosage: 20 MG, QD
     Route: 048
     Dates: end: 20090202
  3. ALDACTONE [Interacting]
     Indication: HYPERTENSION
     Dosage: 1 DF, QD
     Route: 048
     Dates: end: 20090202
  4. COUMADIN [Suspect]
     Indication: PROPHYLAXIS
     Dosage: 2 MG AND 1 MG /DAY
     Route: 048
  5. HEMIGOXINE NATIVELLE [Suspect]
     Indication: ATRIAL FIBRILLATION
     Dosage: 1 DF, QD
     Route: 048
     Dates: end: 20090202
  6. HEMIGOXINE NATIVELLE [Suspect]
     Indication: ARRHYTHMIA SUPRAVENTRICULAR
  7. ADANCOR [Suspect]
     Indication: ANGINA PECTORIS
     Dosage: 1 DF, QD
     Route: 048
     Dates: end: 20090202
  8. DISCOTRINE [Suspect]
     Indication: PROPHYLAXIS
     Dosage: 1 DF, QD
     Route: 062
     Dates: end: 20090202
  9. CORDARONE [Suspect]
     Indication: ATRIAL FIBRILLATION
     Dosage: 1 DF, QD
     Route: 048
     Dates: end: 20090202
  10. CORDARONE [Suspect]
     Indication: ARRHYTHMIA SUPRAVENTRICULAR
  11. SINGULAIR [Concomitant]
     Dosage: UNK
  12. ESOMEPRAZOLE MAGNESIUM [Concomitant]
     Dosage: UNK
  13. TEMESTA [Concomitant]
     Dosage: UNK
  14. SERETIDE [Concomitant]
     Dosage: UNK

REACTIONS (12)
  - BRADYCARDIA [None]
  - DEHYDRATION [None]
  - DRUG INTERACTION [None]
  - FACE INJURY [None]
  - FALL [None]
  - GAIT DISTURBANCE [None]
  - INTERNATIONAL NORMALISED RATIO INCREASED [None]
  - MALAISE [None]
  - METABOLIC ACIDOSIS [None]
  - PAIN [None]
  - PERIORBITAL HAEMATOMA [None]
  - RENAL FAILURE ACUTE [None]
